FAERS Safety Report 17372102 (Version 1)
Quarter: 2020Q1

REPORT INFORMATION
  Report Type: Report from Study
  Country: SE (occurrence: SE)
  Receive Date: 20200205
  Receipt Date: 20200205
  Transmission Date: 20200409
  Serious: Yes (Hospitalization)
  Sender: FDA-Public Use
  Company Number: SE-MYLANLABS-2020M1012915

PATIENT
  Age: 75 Year
  Sex: Female
  Weight: 57 kg

DRUGS (1)
  1. ACICLOVIR [Suspect]
     Active Substance: ACYCLOVIR
     Indication: HERPES ZOSTER MENINGOENCEPHALITIS
     Dosage: 10 MILLIGRAM, Q8H
     Route: 042

REACTIONS (3)
  - Glomerular filtration rate decreased [Recovering/Resolving]
  - Cognitive disorder [Recovering/Resolving]
  - Confusional state [Recovering/Resolving]
